FAERS Safety Report 9628922 (Version 3)
Quarter: 2017Q3

REPORT INFORMATION
  Report Type: Report from Study
  Country: CA (occurrence: CA)
  Receive Date: 20131017
  Receipt Date: 20170823
  Transmission Date: 20171128
  Serious: Yes (Other)
  Sender: FDA-Public Use
  Company Number: CA-IPSEN BIOPHARMACEUTICALS, INC.-2011-4701

PATIENT
  Age: 64 Year
  Sex: Male

DRUGS (3)
  1. SOMATULINE [Suspect]
     Active Substance: LANREOTIDE ACETATE
     Indication: ACROMEGALY
     Dosage: 90 MG
     Route: 058
     Dates: start: 20090616, end: 20120906
  2. WELLBUTRIN [Suspect]
     Active Substance: BUPROPION HYDROCHLORIDE
     Indication: DEPRESSION
  3. SOMATULINE [Suspect]
     Active Substance: LANREOTIDE ACETATE
     Dosage: 120 MG
     Route: 058
     Dates: start: 20121004, end: 20131002

REACTIONS (26)
  - Depression [Recovered/Resolved]
  - Disturbance in attention [Recovered/Resolved with Sequelae]
  - Asthenia [Recovered/Resolved with Sequelae]
  - Vomiting [Recovered/Resolved]
  - Polypectomy [Unknown]
  - Drug ineffective [Unknown]
  - Hyperhidrosis [Recovered/Resolved]
  - Vision blurred [Recovered/Resolved with Sequelae]
  - Insomnia [Recovered/Resolved]
  - Hip arthroplasty [Unknown]
  - Chills [Recovered/Resolved]
  - Nausea [Not Recovered/Not Resolved]
  - Tinnitus [Unknown]
  - Cyst removal [Unknown]
  - Cataract operation [Unknown]
  - Headache [Unknown]
  - Blood pressure increased [Unknown]
  - Pain [Recovered/Resolved with Sequelae]
  - Transurethral bladder resection [Unknown]
  - Procedural complication [Not Recovered/Not Resolved]
  - Headache [Not Recovered/Not Resolved]
  - Arthralgia [Not Recovered/Not Resolved]
  - Eye laser surgery [Unknown]
  - Joint swelling [Recovered/Resolved with Sequelae]
  - Knee arthroplasty [Recovering/Resolving]
  - Condition aggravated [Unknown]

NARRATIVE: CASE EVENT DATE: 2009
